FAERS Safety Report 5952914-9 (Version None)
Quarter: 2008Q4

REPORT INFORMATION
  Report Type: 
  Country: None (occurrence: None)
  Receive Date: 20081114
  Receipt Date: 20081106
  Transmission Date: 20090506
  Serious: Yes (Hospitalization, Disabling, Other)
  Sender: FDA-Public Use
  Company Number: US-ASTRAZENECA-2008UW15653

PATIENT
  Age: 69 Year
  Sex: Female
  Weight: 36.1 kg

DRUGS (15)
  1. FASLODEX [Suspect]
     Indication: BREAST CANCER METASTATIC
     Route: 030
     Dates: start: 20080101, end: 20080805
  2. FASLODEX [Suspect]
     Indication: METASTATIC NEOPLASM
     Route: 030
     Dates: start: 20080101, end: 20080805
  3. TAMOXIFEN CITRATE [Suspect]
     Route: 048
     Dates: start: 20080828
  4. ZOMETA [Concomitant]
  5. NEXIUM [Concomitant]
     Route: 048
  6. COLACE [Concomitant]
  7. COMPAZINE [Concomitant]
  8. MORPHINE [Concomitant]
     Dosage: 45MG PO TWO TO THREE TIMES DAILY
  9. LISINOPRIL [Concomitant]
     Route: 048
  10. LETROZOLE [Concomitant]
     Route: 048
     Dates: start: 20060619
  11. RANITIDINE HCL [Concomitant]
     Route: 048
  12. NAPROXEN [Concomitant]
     Route: 048
  13. METOCLOPRAMIDE HCL [Concomitant]
  14. SENNA [Concomitant]
     Route: 048
  15. OXYCODONE HCL [Concomitant]
     Route: 048

REACTIONS (7)
  - ABDOMINAL DISCOMFORT [None]
  - GAIT DISTURBANCE [None]
  - HYPOAESTHESIA [None]
  - INFLUENZA LIKE ILLNESS [None]
  - INJECTION SITE PAIN [None]
  - METASTATIC NEOPLASM [None]
  - OSTEOARTHRITIS [None]
